FAERS Safety Report 7579321-X (Version None)
Quarter: 2011Q2

REPORT INFORMATION
  Report Type: 
  Country: None (occurrence: None)
  Receive Date: 20110628
  Receipt Date: 20110609
  Transmission Date: 20111010
  Serious: Yes (Other)
  Sender: FDA-Public Use
  Company Number: US-BAYER-2011-049769

PATIENT
  Age: 51 Year
  Sex: Male
  Weight: 75 kg

DRUGS (4)
  1. TOLTERODINE TARTRATE [Concomitant]
  2. HYDROCHLOROTHIAZIDE [Concomitant]
  3. ALEVE (CAPLET) [Suspect]
     Indication: PAIN IN EXTREMITY
     Dosage: 2 DF, ONCE
     Route: 048
     Dates: start: 20110607, end: 20110607
  4. ATENOLOL [Concomitant]

REACTIONS (2)
  - RECTAL HAEMORRHAGE [None]
  - HAEMATOCHEZIA [None]
